FAERS Safety Report 25831641 (Version 1)
Quarter: 2025Q3

REPORT INFORMATION
  Report Type: Spontaneous
  Country: US (occurrence: None)
  Receive Date: 20250919
  Receipt Date: 20250919
  Transmission Date: 20251020
  Serious: Yes (Hospitalization)
  Sender: FDA-CTU
  Company Number: None

PATIENT
  Sex: Male

DRUGS (2)
  1. AMBRISENTAN [Suspect]
     Active Substance: AMBRISENTAN
     Indication: Pulmonary arterial hypertension
     Dosage: FREQUENCY : DAILY;?
     Route: 048
     Dates: start: 20211109
  2. NORDITROPIN [Concomitant]
     Active Substance: SOMATROPIN

REACTIONS (4)
  - Seizure [None]
  - Cerebrovascular accident [None]
  - Clostridium difficile infection [None]
  - Sapovirus infection [None]
